FAERS Safety Report 11481240 (Version 1)
Quarter: 2015Q3

REPORT INFORMATION
  Report Type: Spontaneous
  Country: US (occurrence: US)
  Receive Date: 20150909
  Receipt Date: 20150909
  Transmission Date: 20151125
  Serious: No
  Sender: FDA-Public Use
  Company Number: US-GILEAD-2015-0170964

PATIENT
  Sex: Female

DRUGS (1)
  1. ZYDELIG [Suspect]
     Active Substance: IDELALISIB
     Indication: PRODUCT USED FOR UNKNOWN INDICATION
     Dosage: UNK
     Route: 065
     Dates: start: 201508

REACTIONS (5)
  - Gingival pain [Unknown]
  - Insomnia [Unknown]
  - Gingival erythema [Unknown]
  - Noninfective gingivitis [Unknown]
  - Gingival swelling [Unknown]

NARRATIVE: CASE EVENT DATE: 201509
